FAERS Safety Report 9925742 (Version 1)
Quarter: 2014Q1

REPORT INFORMATION
  Report Type: Spontaneous
  Country: US (occurrence: None)
  Receive Date: 20140220
  Receipt Date: 20140220
  Transmission Date: 20141002
  Serious: Yes (Death)
  Sender: FDA-Public Use
  Company Number: 1402-0326

PATIENT
  Age: 92 Year
  Sex: Female

DRUGS (1)
  1. EYLEA [Suspect]

REACTIONS (1)
  - Cardiac failure [None]
